FAERS Safety Report 9210353 (Version 3)
Quarter: 2013Q4

REPORT INFORMATION
  Report Type: Spontaneous
  Country: US (occurrence: US)
  Receive Date: 20130404
  Receipt Date: 20131031
  Transmission Date: 20140711
  Serious: Yes (Hospitalization, Other)
  Sender: FDA-Public Use
  Company Number: US-PFIZER INC-2013106565

PATIENT
  Age: 41 Year
  Sex: Female
  Weight: 89.34 kg

DRUGS (11)
  1. LYRICA [Suspect]
     Indication: NEURALGIA
     Dosage: 150 MG, 2X/DAY
     Route: 048
     Dates: start: 20120130
  2. LYRICA [Suspect]
     Indication: FIBROMYALGIA
     Dosage: 300 MG, 2X/DAY
     Route: 048
     Dates: start: 20120223
  3. CYMBALTA [Concomitant]
     Indication: DEPRESSION
     Dosage: 30 MG, 3X/DAY
     Route: 048
  4. SEROQUEL [Concomitant]
     Dosage: 400 MG, EVERY EVENING AT BEDTIME
     Route: 048
  5. KLONOPIN [Concomitant]
     Dosage: 1 MG, 3X/DAY
  6. MORPHINE [Concomitant]
     Indication: PAIN
     Dosage: 15 MG, 2X/DAY
     Route: 048
  7. MORPHINE [Concomitant]
     Dosage: 30 MG, 2X/DAY
  8. ZOLPIDEM [Concomitant]
     Dosage: 400 MG, EVERY NIGHT
     Route: 048
  9. ZANAFLEX [Concomitant]
     Indication: MUSCLE SPASMS
     Dosage: 4 MG, 3X/DAY AS NEEDED
     Route: 048
  10. GABAPENTIN [Concomitant]
     Dosage: 800 MG, 3X/DAY
  11. VITAMIN D [Concomitant]
     Dosage: 50000 IU, WEEKLY
     Route: 048

REACTIONS (2)
  - Myelitis transverse [Not Recovered/Not Resolved]
  - Neuralgia [Unknown]
